FAERS Safety Report 13393933 (Version 1)
Quarter: 2017Q1

REPORT INFORMATION
  Report Type: Report from Study
  Country: US (occurrence: US)
  Receive Date: 20170331
  Receipt Date: 20170331
  Transmission Date: 20170429
  Serious: Yes (Other)
  Sender: FDA-Public Use
  Company Number: US-JAZZ-2017-US-003908

PATIENT
  Age: 27 Year
  Sex: Male

DRUGS (2)
  1. XYREM [Suspect]
     Active Substance: SODIUM OXYBATE
     Indication: CATAPLEXY
  2. XYREM [Suspect]
     Active Substance: SODIUM OXYBATE
     Indication: NARCOLEPSY
     Dosage: 2.25 G, BID
     Route: 048
     Dates: start: 201612

REACTIONS (5)
  - Migraine [Not Recovered/Not Resolved]
  - Feeling drunk [Unknown]
  - Crystal urine present [Unknown]
  - Seizure like phenomena [Unknown]
  - Anxiety [Unknown]

NARRATIVE: CASE EVENT DATE: 201703
